FAERS Safety Report 4982588-5 (Version None)
Quarter: 2006Q2

REPORT INFORMATION
  Report Type: 
  Country: None (occurrence: None)
  Receive Date: 20060425
  Receipt Date: 20060221
  Transmission Date: 20061013
  Serious: Yes (Life-Threatening)
  Sender: FDA-Public Use
  Company Number: NL-BOEHRINGER INGELHEIM PHARMACEUTICALS, INC.-2006-BP-04612YA

PATIENT
  Sex: Male

DRUGS (3)
  1. OMNIC OCAS ORODISPERSABLE CR [Suspect]
     Route: 048
     Dates: start: 20051205, end: 20060115
  2. PARIET [Concomitant]
     Dates: start: 20030106
  3. PARACETAMOL [Concomitant]
     Dates: start: 19980101

REACTIONS (1)
  - HEPATIC FUNCTION ABNORMAL [None]
